FAERS Safety Report 9796214 (Version 2)
Quarter: 2014Q1

REPORT INFORMATION
  Report Type: Spontaneous
  Country: US (occurrence: US)
  Receive Date: 20140103
  Receipt Date: 20140121
  Transmission Date: 20141002
  Serious: Yes (Congenital Anomaly, Other)
  Sender: FDA-Public Use
  Company Number: US-PFIZER INC-2013374650

PATIENT
  Sex: Female

DRUGS (15)
  1. ZOLOFT [Suspect]
     Indication: DEPRESSION
     Dosage: UNK
     Route: 064
     Dates: start: 200404, end: 200412
  2. SERTRALINE HCL [Suspect]
     Indication: DEPRESSION
     Dosage: UNK
     Route: 064
     Dates: start: 200404, end: 200412
  3. PROZAC [Concomitant]
     Dosage: UNK
     Route: 064
  4. ZITHROMAX [Concomitant]
     Dosage: UNK
     Route: 064
  5. VANTIN [Concomitant]
     Dosage: UNK
     Route: 064
  6. BENADRYL [Concomitant]
     Dosage: UNK
     Route: 064
  7. OXYCONTIN [Concomitant]
     Dosage: UNK
     Route: 064
  8. ZYRTEC [Concomitant]
     Dosage: UNK
     Route: 064
  9. NEURONTIN [Concomitant]
     Dosage: UNK
     Route: 064
  10. AUGMENTIN [Concomitant]
     Dosage: UNK
     Route: 064
  11. BACTRIM [Concomitant]
     Dosage: UNK
     Route: 064
  12. VALTREX [Concomitant]
     Dosage: UNK
     Route: 064
  13. FOLIC ACID [Concomitant]
     Dosage: UNK
     Route: 064
  14. IRON [Concomitant]
     Dosage: PILLS
     Route: 064
  15. PRENATAL VITAMINS [Concomitant]
     Dosage: UNK
     Route: 064

REACTIONS (5)
  - Maternal exposure during pregnancy [Unknown]
  - Cleft palate [Unknown]
  - Cleft lip [Unknown]
  - Congenital anomaly [Unknown]
  - Premature baby [Unknown]
